FAERS Safety Report 7713373-9 (Version None)
Quarter: 2011Q3

REPORT INFORMATION
  Report Type: 
  Country: None (occurrence: None)
  Receive Date: 20110826
  Receipt Date: 20110816
  Transmission Date: 20111222
  Serious: Yes (Hospitalization, Other)
  Sender: FDA-Public Use
  Company Number: US-BAYER-2011-022565

PATIENT
  Age: 38 Year
  Sex: Female
  Weight: 54.422 kg

DRUGS (10)
  1. CEFUROXIME AXETIL [Concomitant]
  2. VAGINAL CAPSULES [Concomitant]
  3. YASMIN [Suspect]
     Indication: ACNE
     Dosage: UNK
     Dates: start: 20060601, end: 20060801
  4. MIRENA [Concomitant]
     Dosage: UNK
     Dates: start: 20061101, end: 20110401
  5. YAZ [Suspect]
     Indication: ACNE
     Dosage: UNK
     Dates: start: 20080501, end: 20090313
  6. YAZ [Suspect]
     Dosage: UNK
     Dates: start: 20090221, end: 20090313
  7. ACYCLOVIR [Concomitant]
  8. TUSSIONEX [Concomitant]
  9. MACROBID [Concomitant]
  10. FOLIC ACID [Concomitant]

REACTIONS (15)
  - VERTIGO [None]
  - BLOOD PRESSURE INCREASED [None]
  - FATIGUE [None]
  - NAUSEA [None]
  - VISUAL IMPAIRMENT [None]
  - TACHYCARDIA [None]
  - INJURY [None]
  - EMBOLIC STROKE [None]
  - FEAR [None]
  - VOMITING [None]
  - ATAXIA [None]
  - NYSTAGMUS [None]
  - HEADACHE [None]
  - EMOTIONAL DISTRESS [None]
  - PAIN [None]
